FAERS Safety Report 9223545 (Version 1)
Quarter: 2013Q2

REPORT INFORMATION
  Report Type: Spontaneous
  Country: IT (occurrence: IT)
  Receive Date: 20130410
  Receipt Date: 20130410
  Transmission Date: 20140414
  Serious: Yes (Hospitalization, Other)
  Sender: FDA-Public Use
  Company Number: IT-BRISTOL-MYERS SQUIBB COMPANY-18732404

PATIENT
  Age: 85 Year
  Sex: Male

DRUGS (2)
  1. COUMADIN TABS 5 MG [Suspect]
     Indication: ATRIAL FIBRILLATION
     Dosage: 1DF=1 UNIT.
     Route: 048
     Dates: start: 20120227
  2. RAMIPRIL [Suspect]
     Indication: HYPERTENSION
     Dosage: 1DF=1 UNIT.
     Route: 048
     Dates: start: 20120227

REACTIONS (7)
  - Cardiac failure [Unknown]
  - Hyperkalaemia [Recovered/Resolved]
  - Overdose [Recovered/Resolved]
  - Renal failure chronic [Unknown]
  - International normalised ratio increased [Recovered/Resolved]
  - Asthenia [Recovered/Resolved]
  - Dysarthria [Recovered/Resolved]
